FAERS Safety Report 20958837 (Version 1)
Quarter: 2022Q2

REPORT INFORMATION
  Report Type: Report from Study
  Country: US (occurrence: US)
  Receive Date: 20220614
  Receipt Date: 20220614
  Transmission Date: 20220720
  Serious: Yes (Other)
  Sender: FDA-Public Use
  Company Number: US-UCBSA-2022019726

PATIENT
  Age: 29 Year
  Sex: Female

DRUGS (1)
  1. CERTOLIZUMAB PEGOL [Suspect]
     Active Substance: CERTOLIZUMAB PEGOL
     Indication: Axial spondyloarthritis
     Dosage: 400 MILLIGRAM, EV 2 WEEKS(QOW)
     Route: 058
     Dates: start: 20220401, end: 20220503

REACTIONS (7)
  - Petechiae [Recovering/Resolving]
  - Dermatitis [Recovering/Resolving]
  - Rash [Recovering/Resolving]
  - Incorrect dose administered [Unknown]
  - Device difficult to use [Unknown]
  - Device issue [Unknown]
  - Device leakage [Unknown]

NARRATIVE: CASE EVENT DATE: 20220401
